FAERS Safety Report 20719274 (Version 1)
Quarter: 2022Q2

REPORT INFORMATION
  Report Type: Spontaneous
  Country: US (occurrence: None)
  Receive Date: 20220415
  Receipt Date: 20220415
  Transmission Date: 20220721
  Serious: Yes (Death)
  Sender: FDA-Public Use
  Company Number: None

PATIENT
  Age: 27 Year
  Sex: Male
  Weight: 81 kg

DRUGS (1)
  1. HERBALS\MITRAGYNINE [Suspect]
     Active Substance: HERBALS\MITRAGYNINE

REACTIONS (5)
  - Seizure [None]
  - Cardiac arrest [None]
  - Bell^s palsy [None]
  - Vertigo [None]
  - Herbal toxicity [None]

NARRATIVE: CASE EVENT DATE: 20190413
